FAERS Safety Report 20852463 (Version 1)
Quarter: 2022Q2

REPORT INFORMATION
  Report Type: Report from Study
  Country: CO (occurrence: CO)
  Receive Date: 20220520
  Receipt Date: 20220520
  Transmission Date: 20220720
  Serious: Yes (Other)
  Sender: FDA-Public Use
  Company Number: CO-ABBVIE-22K-036-4262689-00

PATIENT
  Age: 39 Year
  Sex: Male
  Weight: 107 kg

DRUGS (4)
  1. HUMIRA [Suspect]
     Active Substance: ADALIMUMAB
     Indication: Colitis ulcerative
     Route: 058
     Dates: start: 20211215
  2. CYCLOSPORINE [Concomitant]
     Active Substance: CYCLOSPORINE
     Indication: Immune disorder prophylaxis
     Route: 048
     Dates: start: 2019
  3. WARFARIN [Concomitant]
     Active Substance: WARFARIN
     Indication: Antiphospholipid syndrome
     Route: 048
     Dates: start: 2018
  4. FOLIC ACID [Concomitant]
     Active Substance: FOLIC ACID
     Indication: Product used for unknown indication
     Route: 048
     Dates: start: 202110

REACTIONS (10)
  - Pyoderma gangrenosum [Recovering/Resolving]
  - Haematochezia [Not Recovered/Not Resolved]
  - Proctalgia [Not Recovered/Not Resolved]
  - Pre-existing condition improved [Unknown]
  - Wound secretion [Unknown]
  - Overweight [Unknown]
  - Therapeutic response unexpected [Unknown]
  - Therapeutic response shortened [Not Recovered/Not Resolved]
  - Abdominal pain [Not Recovered/Not Resolved]
  - Diarrhoea [Not Recovered/Not Resolved]

NARRATIVE: CASE EVENT DATE: 20220101
